FAERS Safety Report 7086545 (Version 3)
Quarter: 2013Q4

REPORT INFORMATION
  Report Type: Spontaneous
  Country: US (occurrence: US)
  Receive Date: 20090820
  Receipt Date: 20131025
  Transmission Date: 20140711
  Serious: Yes (Hospitalization)
  Sender: FDA-Public Use
  Company Number: US-ASTRAZENECA-2009SE08155

PATIENT
  Age: 84 Year
  Sex: Female
  Weight: 50.3 kg

DRUGS (15)
  1. CRESTOR [Suspect]
     Indication: BLOOD CHOLESTEROL INCREASED
     Route: 048
     Dates: start: 2008
  2. CRESTOR [Suspect]
     Indication: BLOOD CHOLESTEROL INCREASED
     Route: 048
     Dates: start: 2013
  3. BABY ASPIRIN/ASPIRIN [Concomitant]
     Indication: CARDIAC DISORDER
     Dosage: 81, DAILY
  4. BABY ASPIRIN/ASPIRIN [Concomitant]
     Indication: CARDIAC DISORDER
     Route: 048
  5. OMEPRAZOLE [Concomitant]
     Dosage: 40, TWO TIMES A DAY
  6. LEVOTHYROXINE [Concomitant]
     Indication: THYROID DISORDER
     Route: 048
  7. WARFARIN [Concomitant]
  8. PAROXETINE [Concomitant]
     Indication: ANXIETY
     Dosage: 20, DAILY
  9. PAROXETINE [Concomitant]
     Indication: ANXIETY
     Route: 048
  10. GABAPENTIN [Concomitant]
     Dosage: 900, THREE TIMES A DAY
  11. ALLER-TEC [Concomitant]
     Indication: HYPERSENSITIVITY
     Dosage: DAILY
     Route: 048
  12. HYDROCO/ATAT [Concomitant]
     Indication: PAIN
     Dosage: 5/500 MG DAILY
     Route: 048
  13. ONDANSETRON [Concomitant]
     Indication: NAUSEA
     Route: 048
  14. PANTOPRAZOLE [Concomitant]
     Indication: GASTROOESOPHAGEAL REFLUX DISEASE
     Route: 048
  15. VITAMIN D3 [Concomitant]
     Route: 048

REACTIONS (7)
  - Pneumonia [Unknown]
  - Pneumonia aspiration [Unknown]
  - Vomiting [Unknown]
  - Nausea [Unknown]
  - Gastrooesophageal reflux disease [Unknown]
  - Gastric disorder [Unknown]
  - Intentional drug misuse [Unknown]
